FAERS Safety Report 22650277 (Version 1)
Quarter: 2023Q2

REPORT INFORMATION
  Report Type: Spontaneous
  Country: US (occurrence: US)
  Receive Date: 20230628
  Receipt Date: 20230628
  Transmission Date: 20230721
  Serious: No
  Sender: FDA-Public Use
  Company Number: US-JNJFOC-20230656474

PATIENT
  Age: 54 Year
  Sex: Female

DRUGS (3)
  1. SELEXIPAG [Suspect]
     Active Substance: SELEXIPAG
     Indication: Pulmonary arterial hypertension
     Route: 048
     Dates: start: 202306
  2. REMODULIN [Suspect]
     Active Substance: TREPROSTINIL
     Indication: Pulmonary arterial hypertension
     Dosage: SELF-FILL CASSETTE WITH 2.9 ML; RATE OF 34 MCL PER HOUR
     Route: 058
     Dates: start: 20230116
  3. MACITENTAN [Concomitant]
     Active Substance: MACITENTAN

REACTIONS (16)
  - Infusion site pain [Not Recovered/Not Resolved]
  - Oedema [Unknown]
  - Ecchymosis [Unknown]
  - Device leakage [Unknown]
  - Device failure [Unknown]
  - Infusion site erythema [Recovering/Resolving]
  - Infusion site swelling [Recovering/Resolving]
  - Device maintenance issue [Unknown]
  - Infusion site infection [Unknown]
  - Pain [Not Recovered/Not Resolved]
  - Dyspnoea exertional [Not Recovered/Not Resolved]
  - Fatigue [Not Recovered/Not Resolved]
  - Diarrhoea [Recovered/Resolved]
  - Infusion site irritation [Recovering/Resolving]
  - Constipation [Recovered/Resolved]
  - Infusion site inflammation [Recovering/Resolving]

NARRATIVE: CASE EVENT DATE: 20230101
